FAERS Safety Report 23081499 (Version 1)
Quarter: 2023Q4

REPORT INFORMATION
  Report Type: Spontaneous
  Country: JP (occurrence: JP)
  Receive Date: 20231019
  Receipt Date: 20231019
  Transmission Date: 20240109
  Serious: Yes (Other)
  Sender: FDA-Public Use
  Company Number: JP-aspen-SDZ2023JP000804AA

PATIENT
  Age: 75 Year
  Sex: Female

DRUGS (2)
  1. ANAPEINE [Suspect]
     Active Substance: ROPIVACAINE HYDROCHLORIDE
     Indication: Thymectomy
     Dosage: 12 ML, A TOTAL OF 12 ML WAS ADMINISTERED IN A SINGLE DOSE AS APPROPRIATE
     Route: 065
  2. XYLOCAINE [Suspect]
     Active Substance: LIDOCAINE HYDROCHLORIDE
     Indication: Thymectomy
     Dosage: 3 ML, ONCE/SINGLE
     Route: 065

REACTIONS (3)
  - Monoplegia [Recovered/Resolved]
  - Hypoaesthesia [Recovered/Resolved]
  - Medication error [Unknown]
